FAERS Safety Report 20192007 (Version 3)
Quarter: 2022Q1

REPORT INFORMATION
  Report Type: Report from Study
  Country: US (occurrence: US)
  Receive Date: 20211216
  Receipt Date: 20220302
  Transmission Date: 20220423
  Serious: Yes (Death, Hospitalization, Other)
  Sender: FDA-Public Use
  Company Number: US-NOVARTISPH-NVSC2021US281096

PATIENT
  Age: 43 Year
  Sex: Female
  Weight: 54.875 kg

DRUGS (1)
  1. TREPROSTINIL [Suspect]
     Active Substance: TREPROSTINIL
     Indication: Pulmonary arterial hypertension
     Dosage: 18 NG/KG/MIN, CONT
     Route: 042
     Dates: start: 20211101

REACTIONS (10)
  - Death [Fatal]
  - Liver disorder [Unknown]
  - Dyspnoea [Unknown]
  - Hypervolaemia [Unknown]
  - Pleural effusion [Unknown]
  - Pericardial effusion [Unknown]
  - Oxygen saturation decreased [Unknown]
  - Blood pressure decreased [Unknown]
  - Eye haemorrhage [Unknown]
  - Pain [Unknown]

NARRATIVE: CASE EVENT DATE: 20211124
